FAERS Safety Report 6107941-8 (Version None)
Quarter: 2009Q1

REPORT INFORMATION
  Report Type: 
  Country: None (occurrence: None)
  Receive Date: 20090309
  Receipt Date: 20090206
  Transmission Date: 20090719
  Serious: No
  Sender: FDA-Public Use
  Company Number: US-BAYER-200813594BCC

PATIENT
  Age: 60 Year
  Sex: Male
  Weight: 88 kg

DRUGS (2)
  1. ALEVE (CAPLET) [Suspect]
     Indication: ARTHRALGIA
     Route: 048
     Dates: start: 20080826
  2. LISINOPRIL [Concomitant]

REACTIONS (1)
  - BLOOD PRESSURE INCREASED [None]
